FAERS Safety Report 7310411-2 (Version None)
Quarter: 2011Q1

REPORT INFORMATION
  Report Type: 
  Country: None (occurrence: None)
  Receive Date: 20110224
  Receipt Date: 20100727
  Transmission Date: 20110831
  Serious: No
  Sender: FDA-Public Use
  Company Number: US-BRISTOL-MYERS SQUIBB COMPANY-15206873

PATIENT
  Age: 73 Year
  Sex: Male
  Weight: 87 kg

DRUGS (3)
  1. COUMADIN [Suspect]
     Indication: KNEE ARTHROPLASTY
     Route: 048
     Dates: start: 20100706
  2. METFORMIN HCL [Suspect]
  3. HYDROCODONE + ACETAMINOPHEN [Concomitant]
     Dosage: 1 DF: 10/500 MG

REACTIONS (1)
  - WEIGHT DECREASED [None]
